FAERS Safety Report 16997188 (Version 1)
Quarter: 2019Q4

REPORT INFORMATION
  Report Type: Spontaneous
  Country: US (occurrence: US)
  Receive Date: 20190924
  Receipt Date: 20190924
  Transmission Date: 20200122
  Serious: No
  Sender: FDA-Public Use
  Company Number: None

PATIENT
  Age: 11 Year
  Sex: Female

DRUGS (2)
  1. PENNEEDLE UF MINI 31GX5MM (DEVICE) [Suspect]
     Active Substance: DEVICE
     Dosage: ?          OTHER DOSE:1 NEEDLE;?
     Route: 058
     Dates: start: 201906
  2. NUTROPIN [Concomitant]
     Active Substance: SOMATROPIN

REACTIONS (2)
  - Device issue [None]
  - Injection site pain [None]

NARRATIVE: CASE EVENT DATE: 20190924
